FAERS Safety Report 13634136 (Version 1)
Quarter: 2017Q2

REPORT INFORMATION
  Report Type: Spontaneous
  Country: US (occurrence: US)
  Receive Date: 20170531
  Receipt Date: 20170531
  Transmission Date: 20170830
  Serious: No
  Sender: FDA-Public Use
  Company Number: US-ASTELLAS-1607672

PATIENT
  Age: 60 Year
  Sex: Female

DRUGS (6)
  1. TARCEVA [Suspect]
     Active Substance: ERLOTINIB HYDROCHLORIDE
     Indication: HEPATIC CANCER
     Dosage: ON 26/JUN/2015, THERAPY WITH ERLOTINIB HYDROCHLORIDE WAS MAINTAINED.
     Route: 048
     Dates: start: 201505, end: 201508
  2. LORAZEPAM. [Concomitant]
     Active Substance: LORAZEPAM
  3. OXYCODONE/PARACETAMOL [Concomitant]
     Active Substance: ACETAMINOPHEN\OXYCODONE HYDROCHLORIDE
  4. AVASTIN [Concomitant]
     Active Substance: BEVACIZUMAB
     Route: 065
  5. LOVENOX [Concomitant]
     Active Substance: ENOXAPARIN SODIUM
  6. GABANTIN [Concomitant]

REACTIONS (3)
  - Fatigue [Not Recovered/Not Resolved]
  - Rash [Not Recovered/Not Resolved]
  - Drug ineffective [Unknown]

NARRATIVE: CASE EVENT DATE: 201505
